FAERS Safety Report 9388042 (Version 3)
Quarter: 2014Q1

REPORT INFORMATION
  Report Type: Spontaneous
  Country: US (occurrence: US)
  Receive Date: 20130708
  Receipt Date: 20140204
  Transmission Date: 20141002
  Serious: Yes (Hospitalization)
  Sender: FDA-Public Use
  Company Number: US-TEVA-417381USA

PATIENT
  Age: 86 Year
  Sex: Male

DRUGS (1)
  1. AMOXICILLIN [Suspect]
     Route: 048

REACTIONS (9)
  - Pyrexia [Recovered/Resolved]
  - Asthenia [Recovered/Resolved]
  - Fall [Recovering/Resolving]
  - Speech disorder [Recovering/Resolving]
  - Confusional state [Unknown]
  - Anxiety [Unknown]
  - Agitation [Unknown]
  - Thrombocytopenia [Unknown]
  - Malaise [Recovering/Resolving]
